FAERS Safety Report 10085261 (Version 1)
Quarter: 2014Q2

REPORT INFORMATION
  Report Type: Spontaneous
  Country: US (occurrence: US)
  Receive Date: 20140417
  Receipt Date: 20140417
  Transmission Date: 20141212
  Serious: Yes (Death, Other)
  Sender: FDA-Public Use
  Company Number: US-GILEAD-2014-0100041

PATIENT
  Age: 56 Year
  Sex: Female

DRUGS (19)
  1. LETAIRIS [Suspect]
     Indication: PULMONARY HYPERTENSION
     Dosage: 10 MG, QD
     Route: 065
     Dates: start: 20131023
  2. SILDENAFIL [Concomitant]
  3. LOVASTATIN [Concomitant]
  4. ENALAPRIL [Concomitant]
  5. FUROSEMIDE [Concomitant]
  6. PRENATAL PLUS IRON [Concomitant]
  7. CYCLOBENZAPRINE [Concomitant]
  8. ATENOLOL [Concomitant]
  9. METFORMIN [Concomitant]
  10. FLOVENT [Concomitant]
  11. SEROQUEL [Concomitant]
  12. CITALOPRAM [Concomitant]
  13. LORATADINE [Concomitant]
  14. OMEPRAZOLE [Concomitant]
  15. POTASSIUM CHLORIDE [Concomitant]
  16. OXYCODONE [Concomitant]
  17. ASPIRIN [Concomitant]
  18. CLONAZEPAM [Concomitant]
  19. FLUTICASONE [Concomitant]

REACTIONS (3)
  - Pulmonary hypertension [Fatal]
  - Viral infection [Fatal]
  - Pharyngitis streptococcal [Fatal]
